FAERS Safety Report 5603328-2 (Version None)
Quarter: 2008Q1

REPORT INFORMATION
  Report Type: 
  Country: None (occurrence: None)
  Receive Date: 20080122
  Receipt Date: 20080108
  Transmission Date: 20080703
  Serious: Yes (Hospitalization)
  Sender: FDA-Public Use
  Company Number: 2008AL000073

PATIENT
  Age: 55 Year
  Sex: Male

DRUGS (3)
  1. GABAPENTIN [Suspect]
     Indication: PAIN
     Dosage: 300 MG; QD;
  2. PREGABALIN [Concomitant]
  3. PREGABALIN [Concomitant]

REACTIONS (5)
  - DIALYSIS [None]
  - NAUSEA [None]
  - PAIN [None]
  - RENAL DISORDER [None]
  - RENAL TRANSPLANT [None]
